FAERS Safety Report 10258351 (Version 4)
Quarter: 2014Q3

REPORT INFORMATION
  Report Type: Spontaneous
  Country: AR (occurrence: AR)
  Receive Date: 20140625
  Receipt Date: 20140728
  Transmission Date: 20150326
  Serious: Yes (Hospitalization)
  Sender: FDA-Public Use
  Company Number: AR-PFIZER INC-2014172944

PATIENT
  Age: 64 Year
  Sex: Female

DRUGS (1)
  1. SUTENT [Suspect]
     Active Substance: SUNITINIB MALATE
     Indication: METASTATIC RENAL CELL CARCINOMA
     Dosage: 50 MG, 1X/DAY, SCHEME 4/2 (4 WEEKS ON, 2 WEEKS OFF)
     Dates: start: 20140416, end: 20140521

REACTIONS (4)
  - Decreased appetite [Recovering/Resolving]
  - Dehydration [Recovered/Resolved]
  - Ill-defined disorder [Not Recovered/Not Resolved]
  - Gastrointestinal fungal infection [Recovered/Resolved]

NARRATIVE: CASE EVENT DATE: 2014
